FAERS Safety Report 7234516-X (Version None)
Quarter: 2011Q1

REPORT INFORMATION
  Report Type: 
  Country: None (occurrence: None)
  Receive Date: 20110119
  Receipt Date: 20110117
  Transmission Date: 20110831
  Serious: Yes (Death, Other)
  Sender: FDA-Public Use
  Company Number: US-ELI_LILLY_AND_COMPANY-US201012000276

PATIENT
  Sex: Female

DRUGS (26)
  1. QUINAPRIL [Concomitant]
     Dosage: 40 MG, DAILY (1/D)
  2. FELODIPINE [Concomitant]
     Dosage: 5 MG, DAILY (1/D)
  3. ASPIRIN [Concomitant]
     Dosage: 325 MG, DAILY (1/D)
  4. TUMS /00108001/ [Concomitant]
  5. ATENOLOL [Concomitant]
  6. CLONIDINE HCL [Concomitant]
     Dosage: 0.1 MG, 1 TABLET EVERY MORNING AND TWO TABLETS IN THE EVENING
  7. LOVAZA [Concomitant]
     Dosage: 1 D/F, DAILY (1/D)
  8. ASCORBIC ACID [Concomitant]
     Dosage: 1 D/F, DAILY (1/D)
  9. LEVOTHYROXINE SODIUM [Concomitant]
  10. METFORMIN HCL [Concomitant]
  11. TENORMIN [Concomitant]
     Dosage: 100 MG, DAILY (1/D)
     Route: 048
  12. MSM [Concomitant]
     Dosage: 1 D/F, DAILY (1/D)
  13. VITAMIN B COMPLEX /06442901/ [Concomitant]
     Dosage: 1 D/F, DAILY (1/D)
  14. LIPITOR [Concomitant]
     Dosage: 10 MG, 1/2 TABLET THREE TIMES WEEKLY
     Route: 048
  15. CLONIDINE [Concomitant]
  16. PLENDIL [Concomitant]
  17. METFORMIN HCL [Concomitant]
     Dosage: 500 MG, 2/D
     Route: 048
  18. ACCUPRIL [Concomitant]
  19. SYNTHROID [Concomitant]
     Dosage: 150 UG, DAILY (1/D)
     Route: 048
  20. SPIRONOLACTONE [Concomitant]
     Dosage: 50 MG, 2/D
  21. IBUPROFEN [Concomitant]
     Dosage: 1 D/F, AS NEEDED
  22. GLUCOSAMINE CHONDROITIN [Concomitant]
     Dosage: 1 D/F, DAILY (1/D)
  23. CORTEF [Concomitant]
     Dosage: 20 MG, 1 TABLET EVERY MORNING AND HALF TABLET EVERY EVENING
  24. HUMATROPE [Suspect]
     Dosage: 0.2 MG, DAILY (1/D)
     Dates: start: 20081010
  25. COLECALCIFEROL [Concomitant]
     Dosage: 1000 U, DAILY (1/D)
  26. BENADRYL [Concomitant]
     Dosage: 1 D/F, 4/D

REACTIONS (3)
  - DYSARTHRIA [None]
  - GASTROINTESTINAL HAEMORRHAGE [None]
  - ELECTROLYTE IMBALANCE [None]
